FAERS Safety Report 8546598-3 (Version None)
Quarter: 2012Q3

REPORT INFORMATION
  Report Type: 
  Country: None (occurrence: None)
  Receive Date: 20120727
  Receipt Date: 20111229
  Transmission Date: 20120928
  Serious: No
  Sender: FDA-Public Use
  Company Number: US-ASTRAZENECA-2011SE79029

PATIENT
  Age: 54 Year
  Sex: Male
  Weight: 149.7 kg

DRUGS (8)
  1. PRISTIQ [Concomitant]
  2. LISINOPRIL [Concomitant]
  3. TERRASTATIN [Concomitant]
  4. LEVOTHYROXINE SODIUM [Concomitant]
  5. ATENOLOL [Concomitant]
  6. SEROQUEL XR [Suspect]
     Indication: BIPOLAR DISORDER
     Route: 048
     Dates: start: 20110201
  7. NAPROXEN [Concomitant]
  8. LORATADINE [Concomitant]

REACTIONS (2)
  - LIBIDO DECREASED [None]
  - MOOD SWINGS [None]
